FAERS Safety Report 5298772-X (Version None)
Quarter: 2007Q2

REPORT INFORMATION
  Report Type: 
  Country: None (occurrence: None)
  Receive Date: 20070417
  Receipt Date: 20070411
  Transmission Date: 20071010
  Serious: Yes (Other)
  Sender: FDA-Public Use
  Company Number: JP-BRISTOL-MYERS SQUIBB COMPANY-13746938

PATIENT
  Age: 65 Year
  Sex: Female

DRUGS (2)
  1. TAXOL [Suspect]
     Indication: LUNG ADENOCARCINOMA
     Route: 041
  2. PARAPLATIN [Suspect]
     Indication: LUNG ADENOCARCINOMA
     Route: 041

REACTIONS (1)
  - ACUTE MYELOMONOCYTIC LEUKAEMIA [None]
